FAERS Safety Report 12841962 (Version 1)
Quarter: 2016Q4

REPORT INFORMATION
  Report Type: Spontaneous
  Country: US (occurrence: US)
  Receive Date: 20161012
  Receipt Date: 20161012
  Transmission Date: 20170207
  Serious: No
  Sender: FDA-Public Use
  Company Number: US-ASTRAZENECA-2016SE91892

PATIENT
  Sex: Female

DRUGS (6)
  1. RELPAX [Suspect]
     Active Substance: ELETRIPTAN HYDROBROMIDE
     Indication: MIGRAINE
     Route: 065
  2. MAXALT [Suspect]
     Active Substance: RIZATRIPTAN BENZOATE
     Indication: MIGRAINE
     Route: 065
  3. FROVA [Suspect]
     Active Substance: FROVATRIPTAN SUCCINATE
     Route: 065
  4. AMERGE [Suspect]
     Active Substance: NARATRIPTAN HYDROCHLORIDE
     Indication: MIGRAINE
     Route: 065
  5. ZOMIG [Suspect]
     Active Substance: ZOLMITRIPTAN
     Indication: MIGRAINE
     Route: 065
  6. IMITREX [Suspect]
     Active Substance: SUMATRIPTAN SUCCINATE
     Indication: MIGRAINE
     Route: 065

REACTIONS (14)
  - Vomiting [Unknown]
  - Swelling [Unknown]
  - Allergic sinusitis [Unknown]
  - Hypokinesia [Unknown]
  - Headache [Unknown]
  - Pain [Unknown]
  - Crying [Unknown]
  - Feeling abnormal [Unknown]
  - Facial pain [Unknown]
  - Palpitations [Unknown]
  - Muscle tightness [Unknown]
  - Drug ineffective [Not Recovered/Not Resolved]
  - Malaise [Unknown]
  - Dizziness [Unknown]
